FAERS Safety Report 10444028 (Version 2)
Quarter: 2014Q4

REPORT INFORMATION
  Report Type: Spontaneous
  Country: FR (occurrence: None)
  Receive Date: 20140908
  Receipt Date: 20141031
  Transmission Date: 20150528
  Serious: Yes (Other)
  Sender: FDA-Public Use
  Company Number: FK201403584

PATIENT

DRUGS (13)
  1. LEVOTHYROX (LEVOTHYROXINE SODIUM) [Concomitant]
     Active Substance: LEVOTHYROXINE SODIUM
  2. AMOXICILLIN PANPHARMA (AMOXICILLIN SODIUM) [Concomitant]
  3. LOVENOX [Concomitant]
     Active Substance: ENOXAPARIN SODIUM
  4. PENICILLIN G PANPHARMA (BENZYLPENICILLIN POTASSIUM) [Concomitant]
  5. PYOSTACINE (PRISTINAMYCIN) [Concomitant]
  6. UVEDOSE (COLECALCIFEROL) [Concomitant]
  7. DERMOVAL (BETAMETHASONE) [Concomitant]
  8. KARDEGIC [Concomitant]
     Active Substance: ASPIRIN LYSINE
  9. OROCAL (LEKOVIT CA) [Concomitant]
  10. EMOLLIENTS [Concomitant]
     Active Substance: EMOLLIENTS
  11. VALSARTAN AND HYDROCHLOROTHIAZIDE [Concomitant]
     Active Substance: HYDROCHLOROTHIAZIDE\VALSARTAN
  12. CLINDAMYCIN [Suspect]
     Active Substance: CLINDAMYCIN\CLINDAMYCIN PHOSPHATE
     Indication: PRODUCT USED FOR UNKNOWN INDICATION
     Route: 042
     Dates: start: 20140804, end: 20140809
  13. EFFERALGAN (PARACETAMOL) [Concomitant]

REACTIONS (1)
  - Acute generalised exanthematous pustulosis [None]
